FAERS Safety Report 23031538 (Version 1)
Quarter: 2023Q4

REPORT INFORMATION
  Report Type: Spontaneous
  Country: US (occurrence: US)
  Receive Date: 20231005
  Receipt Date: 20231005
  Transmission Date: 20240110
  Serious: No
  Sender: FDA-Public Use
  Company Number: US-HBP-2023US029703

PATIENT
  Age: 56 Year
  Sex: Male

DRUGS (1)
  1. MECHLORETHAMINE [Suspect]
     Active Substance: MECHLORETHAMINE
     Indication: Cutaneous T-cell lymphoma stage I
     Dosage: UNK, UNKNOWN
     Route: 061

REACTIONS (6)
  - Application site exfoliation [Recovered/Resolved]
  - Application site scab [Recovered/Resolved]
  - Rash vesicular [Recovered/Resolved]
  - Application site reaction [Recovered/Resolved]
  - Skin lesion [Recovered/Resolved]
  - Application site erythema [Recovered/Resolved]
